FAERS Safety Report 5602724-7 (Version None)
Quarter: 2008Q1

REPORT INFORMATION
  Report Type: 
  Country: None (occurrence: None)
  Receive Date: 20080125
  Receipt Date: 20080123
  Transmission Date: 20080703
  Serious: Yes (Hospitalization, Other)
  Sender: FDA-Public Use
  Company Number: FR-BRISTOL-MYERS SQUIBB COMPANY-14050793

PATIENT
  Age: 83 Year
  Sex: Female

DRUGS (6)
  1. COUMADIN [Suspect]
     Indication: PULMONARY EMBOLISM
     Dates: end: 20071005
  2. LIPANTHYL [Suspect]
     Indication: HYPERCHOLESTEROLAEMIA
  3. STRUCTUM [Concomitant]
  4. VASTAREL [Concomitant]
  5. STILNOX [Concomitant]
     Indication: SLEEP DISORDER
  6. LEXOMIL [Concomitant]
     Indication: ANXIETY
     Dates: start: 20071005

REACTIONS (4)
  - FALL [None]
  - HAEMATOMA [None]
  - INTERNATIONAL NORMALISED RATIO ABNORMAL [None]
  - OVERDOSE [None]
